FAERS Safety Report 21628907 (Version 1)
Quarter: 2022Q4

REPORT INFORMATION
  Report Type: Spontaneous
  Country: US (occurrence: None)
  Receive Date: 20221121
  Receipt Date: 20221121
  Transmission Date: 20230112
  Serious: Yes (Death)
  Sender: FDA-Public Use
  Company Number: None

PATIENT
  Age: 33 Year
  Sex: Male
  Weight: 64.0 kg

DRUGS (5)
  1. ZARXIO [Suspect]
     Active Substance: FILGRASTIM-SNDZ
  2. IFOSFAMIDE [Concomitant]
  3. ONDANSETRON [Concomitant]
  4. PERCOCET [Concomitant]
  5. VINCRISTINE [Concomitant]

REACTIONS (1)
  - Death [None]
